FAERS Safety Report 5267217-8 (Version None)
Quarter: 2007Q1

REPORT INFORMATION
  Report Type: 
  Country: None (occurrence: None)
  Receive Date: 20070316
  Receipt Date: 20070307
  Transmission Date: 20070707
  Serious: Yes (Other)
  Sender: FDA-Public Use
  Company Number: US-ROCHE-486007

PATIENT
  Age: 27 Year
  Sex: Female

DRUGS (4)
  1. ACCUTANE [Suspect]
     Route: 065
     Dates: start: 20060515, end: 20060615
  2. ACCUTANE [Suspect]
     Route: 065
     Dates: start: 20060615, end: 20060615
  3. ACCUTANE [Suspect]
     Route: 065
     Dates: start: 20060915, end: 20061215
  4. BIRTH CONTROL PILL [Concomitant]
     Dosage: TAKEN DAILY. FORM REPORTED AS ^PILL.^
     Route: 048

REACTIONS (1)
  - CERVIX CARCINOMA [None]
